FAERS Safety Report 20223166 (Version 4)
Quarter: 2022Q2

REPORT INFORMATION
  Report Type: Report from Study
  Country: US (occurrence: US)
  Receive Date: 20211223
  Receipt Date: 20220604
  Transmission Date: 20220721
  Serious: Yes (Other)
  Sender: FDA-Public Use
  Company Number: US-ABBVIE-21K-163-4209760-00

PATIENT
  Age: 68 Year
  Sex: Female

DRUGS (26)
  1. VENCLEXTA [Suspect]
     Active Substance: VENETOCLAX
     Indication: Primary amyloidosis
     Dosage: TAKE 3 TABLETS BY MOUTH EVERY DAY FOR 30 DAYS
     Route: 048
  2. VENCLEXTA [Suspect]
     Active Substance: VENETOCLAX
     Dosage: TAKE 2 TABLETS BY MOUTH DAILY
     Route: 048
  3. VITAMIN D3 [Concomitant]
     Active Substance: CHOLECALCIFEROL
     Indication: Product used for unknown indication
     Route: 048
  4. VITAMIN B12 [Concomitant]
     Active Substance: CYANOCOBALAMIN
     Indication: Product used for unknown indication
     Route: 048
  5. TIZANIDINE [Concomitant]
     Active Substance: TIZANIDINE
     Indication: Back pain
     Dosage: 1/2-1 TABLET NIGHTLY UP TO TWICE DAILY
     Route: 048
  6. ATORVASTATIN [Concomitant]
     Active Substance: ATORVASTATIN
     Indication: Product used for unknown indication
     Route: 048
  7. METFORMIN [Concomitant]
     Active Substance: METFORMIN HYDROCHLORIDE
     Indication: Product used for unknown indication
     Route: 048
  8. FEXOFENADINE [Concomitant]
     Active Substance: FEXOFENADINE HYDROCHLORIDE
     Indication: Product used for unknown indication
     Route: 048
  9. FLUTICASONE PROPIONATE [Concomitant]
     Active Substance: FLUTICASONE PROPIONATE
     Indication: Product used for unknown indication
     Dosage: RESPIRATORY (INHALATION)
     Route: 055
  10. SINGULAIR [Concomitant]
     Active Substance: MONTELUKAST SODIUM
     Indication: Product used for unknown indication
     Dosage: 1 TABLET DAY BEFORE, DAY OF AND DAY AFTER DARATUMUMAB
     Route: 048
  11. ACETAMINOPHEN [Concomitant]
     Active Substance: ACETAMINOPHEN
     Indication: Amyloidosis
     Dosage: ONCE DAY OF TX DAY 1, 15, 29, 43, 57,71, 85, 99
     Route: 048
  12. DIPHENHYDRAMINE [Concomitant]
     Active Substance: DIPHENHYDRAMINE
     Indication: Amyloidosis
     Dosage: 0.5 ML, ONCE DAY 1, 15, 29, 43, 57, 71, 85, 99
     Route: 042
  13. FAMOTIDINE [Concomitant]
     Active Substance: FAMOTIDINE
     Indication: Amyloidosis
     Dosage: 2ML, DAY 1, 15, 29, 43, 57, 71, 85, 99 ONCE D DAY
     Route: 042
  14. HEPARIN SODIUM [Concomitant]
     Active Substance: HEPARIN SODIUM
     Indication: Amyloidosis
     Dosage: PRN DAY 1, 15, 29, 43, 57, 71, 85, 99
     Route: 036
  15. ZOFRAN [Concomitant]
     Active Substance: ONDANSETRON HYDROCHLORIDE
     Indication: Nausea
     Dosage: 2ML INJECTION, ONCE DAY 1, 15, 29, 43, 57, 71 85, 99
     Route: 042
  16. SODIUM CHLORIDE [Concomitant]
     Active Substance: SODIUM CHLORIDE
     Indication: Amyloidosis
     Dosage: 100 ML IV SOLUTION, ONCE DAY OF TX DAY 1, 15, 29, 43, 57, 71, 85, 99, 100 ML IV SOLUTION
     Route: 042
  17. DARATUMUMAB;HYALURONIDASE FIHJ [Concomitant]
     Indication: Amyloidosis
     Dosage: 1800MG/15ML TNF, ONCE DAY 1, 15, 29, 43, 57, 71, 85, 99
     Route: 058
  18. FUROSEMIDE [Concomitant]
     Active Substance: FUROSEMIDE
     Indication: Swelling
     Dosage: FOR 2 TO 3 DAYS OF SWELLING ISSUE WAS WORSE
     Route: 048
  19. CHOLESTYRAMINE [Concomitant]
     Active Substance: CHOLESTYRAMINE
     Indication: Product used for unknown indication
     Dosage: 4 MG/ 5.5 G POWDER FOR RECONSTITUTION, 1-2 PACKETS
     Route: 048
  20. CYCLOPHOSPHAMIDE [Concomitant]
     Active Substance: CYCLOPHOSPHAMIDE
     Indication: Amyloidosis
     Dosage: PIGGYBACK INJECTION, ONCE DAY 1 8 AND 15
     Route: 042
  21. PROTONIX [Concomitant]
     Active Substance: PANTOPRAZOLE SODIUM
     Indication: Product used for unknown indication
     Dosage: DELAYED RELEASE TABLET
     Route: 048
  22. LORAZEPAM [Concomitant]
     Active Substance: LORAZEPAM
     Indication: Amyloidosis
     Dosage: 0.25 ML INJ, PRN DAY 1 8 AND 15
     Route: 042
     Dates: end: 20210304
  23. BORTEZOMIB [Concomitant]
     Active Substance: BORTEZOMIB
     Indication: Product used for unknown indication
     Dosage: 1.04 ML, ONCE DAY 1 8 AND 15
     Route: 058
     Dates: end: 20210303
  24. METOPROLOL TARTRATE [Concomitant]
     Active Substance: METOPROLOL TARTRATE
     Indication: Product used for unknown indication
     Dosage: 0.5 TABLET?25 MG TABLET
     Route: 048
  25. ACYCLOVIR [Concomitant]
     Active Substance: ACYCLOVIR
     Indication: Product used for unknown indication
     Route: 048
  26. DOXYCYCLINE [Concomitant]
     Active Substance: DOXYCYCLINE
     Indication: Product used for unknown indication
     Route: 048

REACTIONS (4)
  - Pleural effusion [Unknown]
  - Limb operation [Unknown]
  - Croup infectious [Unknown]
  - Off label use [Unknown]

NARRATIVE: CASE EVENT DATE: 20220525
